FAERS Safety Report 9742081 (Version 2)
Quarter: 2013Q4

REPORT INFORMATION
  Report Type: Spontaneous
  Country: US (occurrence: US)
  Receive Date: 20131210
  Receipt Date: 20131210
  Transmission Date: 20140711
  Serious: Yes (Other)
  Sender: FDA-Public Use
  Company Number: 2012SP003505

PATIENT
  Age: 49 Year
  Sex: Female
  Weight: 75.1 kg

DRUGS (22)
  1. FLUOROURACIL [Suspect]
     Indication: COLORECTAL CANCER METASTATIC
     Route: 042
     Dates: start: 20121009
  2. FLUOROURACIL [Suspect]
     Indication: METASTASES TO LIVER
     Route: 042
     Dates: start: 20121009
  3. FLUOROURACIL [Suspect]
     Indication: COLORECTAL CANCER METASTATIC
     Route: 042
     Dates: start: 20121009, end: 20121026
  4. FLUOROURACIL [Suspect]
     Indication: METASTASES TO LIVER
     Route: 042
     Dates: start: 20121009, end: 20121026
  5. OXALIPLATIN [Suspect]
     Indication: COLORECTAL CANCER METASTATIC
     Route: 042
     Dates: start: 20121009
  6. OXALIPLATIN [Suspect]
     Indication: METASTASES TO LIVER
     Route: 042
     Dates: start: 20121009
  7. ATENOLOL [Suspect]
     Indication: HYPERTENSION
     Dates: start: 20071020
  8. ATENOLOL [Suspect]
     Indication: HYPERTENSION
  9. BEVACIZUMAB [Suspect]
     Indication: COLORECTAL CANCER METASTATIC
     Route: 042
     Dates: start: 20121009
  10. BEVACIZUMAB [Suspect]
     Indication: METASTASES TO LIVER
     Route: 042
     Dates: start: 20121009
  11. FOLINIC ACID [Suspect]
     Indication: COLORECTAL CANCER METASTATIC
     Route: 042
     Dates: start: 20121009
  12. FOLINIC ACID [Suspect]
     Indication: METASTASES TO LIVER
     Route: 042
     Dates: start: 20121009
  13. FENTANYL [Concomitant]
     Indication: ABDOMINAL PAIN
     Dates: start: 20120810
  14. LEXAPRO [Concomitant]
     Indication: DEPRESSION
     Dates: start: 20120828
  15. ATIVAN [Concomitant]
     Indication: NAUSEA
     Dates: start: 20121009
  16. RITALIN [Concomitant]
     Indication: NARCOLEPSY
     Dates: start: 20030820
  17. TRAMADOL [Concomitant]
     Indication: BREAKTHROUGH PAIN
     Dates: start: 20120810
  18. TRAZODONE [Concomitant]
     Indication: INSOMNIA
     Dates: start: 19980820
  19. PREVACID [Concomitant]
     Indication: GASTROOESOPHAGEAL REFLUX DISEASE
     Dates: start: 201208
  20. CASANTHRANOL [Concomitant]
     Indication: CONSTIPATION
  21. DOCUSATE SODIUM [Concomitant]
     Indication: CONSTIPATION
  22. SENOKOT /01226001/ [Concomitant]
     Dates: start: 201208

REACTIONS (1)
  - Sinus bradycardia [Recovered/Resolved]
